FAERS Safety Report 13693352 (Version 2)
Quarter: 2019Q3

REPORT INFORMATION
  Report Type: Spontaneous
  Country: GB (occurrence: GB)
  Receive Date: 20170627
  Receipt Date: 20190903
  Transmission Date: 20191004
  Serious: Yes (Death, Hospitalization, Other)
  Sender: FDA-Public Use
  Company Number: GB-JNJFOC-20170624426

PATIENT
  Age: 27 Year
  Sex: Male

DRUGS (1)
  1. IMODIUM [Suspect]
     Active Substance: LOPERAMIDE HYDROCHLORIDE
     Indication: EUPHORIC MOOD
     Dosage: DOSE 200-400 MGS
     Route: 048

REACTIONS (5)
  - Cardiac arrest [Fatal]
  - Brain injury [Fatal]
  - Intentional overdose [Fatal]
  - Intentional product misuse [Fatal]
  - Coma scale abnormal [Unknown]
